FAERS Safety Report 7816769-X (Version None)
Quarter: 2011Q4

REPORT INFORMATION
  Report Type: 
  Country: None (occurrence: None)
  Receive Date: 20111013
  Receipt Date: 20110927
  Transmission Date: 20120403
  Serious: Yes (Hospitalization, Other)
  Sender: FDA-Public Use
  Company Number: 2010MA002623

PATIENT
  Sex: Male
  Weight: 94.3482 kg

DRUGS (52)
  1. KLOR-CON [Concomitant]
  2. PANCREASE [Concomitant]
  3. COZAAR [Concomitant]
  4. CETIRIZINE HCL [Concomitant]
  5. CODEINE SULFATE [Concomitant]
  6. HYDROCHLOROTHIAZIDE [Concomitant]
  7. CAPTOPRIL [Concomitant]
  8. FLOMAX [Concomitant]
  9. METHYLPREDNISOLONE [Concomitant]
  10. CLARINEX [Concomitant]
  11. NIZATIDINE [Concomitant]
  12. AZITHROMYCIN [Concomitant]
  13. ALDACTONE [Concomitant]
  14. MAGIC MOUTHWASH [Concomitant]
  15. HYOMAX [Concomitant]
  16. ALLOPURINOL [Concomitant]
  17. POLYETHYLENE GLYCOL [Concomitant]
  18. MEDROL [Concomitant]
  19. HYCOSAMINE [Concomitant]
  20. POTASSIUM [Concomitant]
  21. METOCLOPRAMIDE [Suspect]
     Indication: DIABETIC GASTROPARESIS
     Dosage: 10 MG;BID;PO
     Route: 048
     Dates: start: 20081201, end: 20090901
  22. METOCLOPRAMIDE [Suspect]
     Indication: GASTROOESOPHAGEAL REFLUX DISEASE
     Dosage: 10 MG;BID;PO
     Route: 048
     Dates: start: 20081201, end: 20090901
  23. METOCLOPRAMIDE [Suspect]
     Indication: IRRITABLE BOWEL SYNDROME
     Dosage: 10 MG;BID;PO
     Route: 048
     Dates: start: 20081201, end: 20090901
  24. NYSTATIN [Concomitant]
  25. TORSEMIDE [Concomitant]
  26. GABAPENTIN [Concomitant]
  27. ARTHROTEC [Concomitant]
  28. TRIAMCINOLONE [Concomitant]
  29. LUMIGAN [Concomitant]
  30. SPIRONOLACTONE [Concomitant]
  31. THYROID MEDS [Concomitant]
  32. NORVASC [Concomitant]
  33. NOVOLOG [Concomitant]
  34. LEVOTHYROXINE SODIUM [Concomitant]
  35. ASPIRIN [Concomitant]
  36. CYMBALTA [Concomitant]
  37. GUAIFENESIN [Concomitant]
  38. COLCHICINE [Concomitant]
  39. FIBERMAX [Concomitant]
  40. LYRICA [Concomitant]
  41. PRILOSEC [Concomitant]
  42. ATENOLOL [Concomitant]
  43. THEOPHYLLINE [Concomitant]
  44. ZEGERID [Concomitant]
  45. MECLIZINE [Concomitant]
  46. FUROSEMIDE [Concomitant]
  47. INSULIN [Concomitant]
  48. COZAAR [Concomitant]
  49. PREVACID [Concomitant]
  50. ZETIA [Concomitant]
  51. FAMOTIDINE [Concomitant]
  52. DICYCLOMINE [Concomitant]

REACTIONS (33)
  - ECONOMIC PROBLEM [None]
  - GRAVITATIONAL OEDEMA [None]
  - HYPONATRAEMIA [None]
  - HYPERTENSION [None]
  - PARKINSONISM [None]
  - ANXIETY [None]
  - ARTHRITIS [None]
  - BACK PAIN [None]
  - BLOOD AMYLASE INCREASED [None]
  - HYPOGLYCAEMIA [None]
  - ABDOMINAL DISTENSION [None]
  - GASTROENTERITIS [None]
  - GOUT [None]
  - ABDOMINAL PAIN [None]
  - BLOOD UREA INCREASED [None]
  - NEUROPATHY PERIPHERAL [None]
  - PANCREATITIS [None]
  - OBESITY [None]
  - DEHYDRATION [None]
  - ANAEMIA [None]
  - BLOOD CREATININE INCREASED [None]
  - NECK INJURY [None]
  - PULMONARY OEDEMA [None]
  - EXTRAPYRAMIDAL DISORDER [None]
  - EXCESSIVE EYE BLINKING [None]
  - GASTROOESOPHAGEAL REFLUX DISEASE [None]
  - ARTHRALGIA [None]
  - TARDIVE DYSKINESIA [None]
  - EMOTIONAL DISORDER [None]
  - BLOOD GLUCOSE INCREASED [None]
  - MUSCLE SPASMS [None]
  - CARDIOMYOPATHY [None]
  - BLOOD POTASSIUM DECREASED [None]
